FAERS Safety Report 8866077 (Version 1)
Quarter: 2012Q4

REPORT INFORMATION
  Report Type: Report from Study
  Country: GB (occurrence: GB)
  Receive Date: 20121025
  Receipt Date: 20121025
  Transmission Date: 20130627
  Serious: Yes (Hospitalization)
  Sender: FDA-Public Use
  Company Number: GB-ROCHE-1144987

PATIENT
  Age: 64 Year
  Sex: Male
  Weight: 82 kg

DRUGS (4)
  1. BEVACIZUMAB [Suspect]
     Indication: GASTRIC CANCER
     Dosage: Most recent adminstration was on 13/Jun/2012.
     Route: 042
     Dates: start: 20120411
  2. CAPECITABINE [Suspect]
     Indication: GASTRIC CANCER
     Dosage: Most recent adminstration was on 13/Jun/2012.
     Route: 048
     Dates: start: 20120411
  3. CISPLATIN [Suspect]
     Indication: GASTRIC CANCER
     Dosage: Most recent adminstration was on 13/Jun/2012.
     Route: 042
     Dates: start: 20120411
  4. EPIRUBICIN [Suspect]
     Indication: GASTRIC CANCER
     Dosage: Most recent adminstration was on 13/Jun/2012.
     Route: 042
     Dates: start: 20120411

REACTIONS (2)
  - Oesophagobronchial fistula [Recovered/Resolved with Sequelae]
  - Anastomotic leak [Recovered/Resolved]
